FAERS Safety Report 4598854-1 (Version None)
Quarter: 2005Q1

REPORT INFORMATION
  Report Type: 
  Country: None (occurrence: None)
  Receive Date: 20050301
  Receipt Date: 20050216
  Transmission Date: 20050727
  Serious: Yes (Other)
  Sender: FDA-Public Use
  Company Number: 2004021501

PATIENT
  Age: 35 Year
  Sex: Male
  Weight: 84.8226 kg

DRUGS (6)
  1. NEURONTIN [Suspect]
     Indication: NEUROPATHY
     Dosage: 300 MG (DAILY)
     Dates: start: 20030101
  2. ESCITALOPRAM (ESCITALOPRAM) [Suspect]
     Indication: ILL-DEFINED DISORDER
     Dosage: 20 MG (DAILY)
  3. ALLEGRA-D [Concomitant]
  4. PROPACET 100 [Concomitant]
  5. PANTOPRAZOLE (PANTOPRAZOLE) [Concomitant]
  6. DOCUSATE (DOCUSATE) [Concomitant]

REACTIONS (11)
  - BALANCE DISORDER [None]
  - CONDITION AGGRAVATED [None]
  - DEPRESSION [None]
  - DIFFICULTY IN WALKING [None]
  - DRUG INTERACTION [None]
  - FALL [None]
  - FEELING DRUNK [None]
  - GAIT DISTURBANCE [None]
  - HALLUCINATION, VISUAL [None]
  - MIGRAINE [None]
  - NIGHTMARE [None]
